FAERS Safety Report 16564418 (Version 1)
Quarter: 2019Q3

REPORT INFORMATION
  Report Type: Spontaneous
  Country: US (occurrence: US)
  Receive Date: 20190712
  Receipt Date: 20190712
  Transmission Date: 20191004
  Serious: Yes (Hospitalization, Other)
  Sender: FDA-Public Use
  Company Number: US-INVENTIA-000301

PATIENT
  Age: 42 Year
  Sex: Female

DRUGS (2)
  1. LISINOPRIL. [Concomitant]
     Active Substance: LISINOPRIL
  2. METFORMIN [Suspect]
     Active Substance: METFORMIN HYDROCHLORIDE
     Indication: TYPE 2 DIABETES MELLITUS

REACTIONS (2)
  - Lactic acidosis [Recovered/Resolved]
  - Acute kidney injury [Recovered/Resolved]
